FAERS Safety Report 12591546 (Version 1)
Quarter: 2016Q3

REPORT INFORMATION
  Report Type: Spontaneous
  Country: US (occurrence: None)
  Receive Date: 20160725
  Receipt Date: 20160725
  Transmission Date: 20161109
  Serious: Yes (Hospitalization)
  Sender: FDA-Public Use
  Company Number: None

PATIENT
  Age: 67 Year
  Sex: Male
  Weight: 69.7 kg

DRUGS (1)
  1. TEMOZOLOMIDE. [Suspect]
     Active Substance: TEMOZOLOMIDE
     Dates: end: 20160617

REACTIONS (7)
  - Pain in extremity [None]
  - Deep vein thrombosis [None]
  - Pulmonary embolism [None]
  - Atrial fibrillation [None]
  - Peripheral swelling [None]
  - Arthralgia [None]
  - Groin pain [None]

NARRATIVE: CASE EVENT DATE: 20160707
